FAERS Safety Report 5105406-3 (Version None)
Quarter: 2006Q3

REPORT INFORMATION
  Report Type: 
  Country: None (occurrence: None)
  Receive Date: 20060915
  Receipt Date: 20060707
  Transmission Date: 20061208
  Serious: Yes (Hospitalization, Other)
  Sender: FDA-Public Use
  Company Number: US-AMGEN-US181928

PATIENT
  Age: 45 Year
  Sex: Female
  Weight: 100 kg

DRUGS (5)
  1. EPOGEN [Suspect]
     Indication: DIALYSIS
     Route: 042
     Dates: end: 20060501
  2. ARANESP [Suspect]
     Indication: RENAL FAILURE CHRONIC
     Route: 065
  3. VENOFER [Concomitant]
     Route: 065
  4. RAPAMUNE [Concomitant]
     Route: 065
  5. CYCLOSPORINE [Concomitant]
     Route: 065

REACTIONS (7)
  - ANTI-ERYTHROPOIETIN ANTIBODY POSITIVE [None]
  - DYSPNOEA [None]
  - EPISTAXIS [None]
  - GASTRITIS [None]
  - HOT FLUSH [None]
  - PRURITUS [None]
  - THERAPEUTIC RESPONSE DECREASED [None]
